FAERS Safety Report 6119820-0 (Version None)
Quarter: 2009Q1

REPORT INFORMATION
  Report Type: 
  Country: None (occurrence: None)
  Receive Date: 20090311
  Receipt Date: 20090227
  Transmission Date: 20090719
  Serious: No
  Sender: FDA-Public Use
  Company Number: 2008-185296-NL

PATIENT
  Age: 79 Year
  Sex: Female

DRUGS (5)
  1. COTAZYM [Suspect]
     Dosage: DF
  2. REGULAR INSULIN [Suspect]
     Dosage: DF
  3. IRON [Concomitant]
  4. POTASSIUM CHLORIDE [Concomitant]
  5. LEVOTHYROXINE SODIUM [Suspect]

REACTIONS (8)
  - AGITATION [None]
  - ANGER [None]
  - ASTHENIA [None]
  - CONFUSIONAL STATE [None]
  - DECREASED APPETITE [None]
  - HALLUCINATION [None]
  - INTESTINAL PERFORATION [None]
  - PANCREATITIS [None]
